FAERS Safety Report 25110851 (Version 1)
Quarter: 2025Q1

REPORT INFORMATION
  Report Type: Spontaneous
  Country: US (occurrence: US)
  Receive Date: 20250324
  Receipt Date: 20250324
  Transmission Date: 20250409
  Serious: Yes (Hospitalization, Disabling)
  Sender: DR REDDYS
  Company Number: None

PATIENT
  Age: 68 Year
  Sex: Male

DRUGS (1)
  1. HEPARIN [Suspect]
     Active Substance: HEPARIN SODIUM
     Indication: Product used for unknown indication

REACTIONS (6)
  - Heparin-induced thrombocytopenia [Recovered/Resolved]
  - Thrombocytopenia [Recovered/Resolved]
  - Vena cava thrombosis [Recovered/Resolved]
  - Blood fibrinogen decreased [Unknown]
  - Peripheral ischaemia [Unknown]
  - Arterial thrombosis [Unknown]
